FAERS Safety Report 7151010-5 (Version None)
Quarter: 2010Q4

REPORT INFORMATION
  Report Type: 
  Country: None (occurrence: None)
  Receive Date: 20101126
  Receipt Date: 20101116
  Transmission Date: 20110411
  Serious: Yes (Hospitalization)
  Sender: FDA-Public Use
  Company Number: 2010P1002674

PATIENT
  Age: 52 Year
  Sex: Male

DRUGS (4)
  1. METFORMIN HCL [Suspect]
     Indication: DIABETES MELLITUS
     Dosage: 850 MG, QD;
  2. VERAPAMIL [Concomitant]
  3. ACETYLSALICYLIC ACID [Concomitant]
  4. PREV MEDS [Concomitant]

REACTIONS (17)
  - ALANINE AMINOTRANSFERASE INCREASED [None]
  - ASPARTATE AMINOTRANSFERASE INCREASED [None]
  - ASTHENIA [None]
  - BILIRUBIN CONJUGATED INCREASED [None]
  - BLOOD BILIRUBIN INCREASED [None]
  - BLOOD CREATINE INCREASED [None]
  - BLOOD UREA INCREASED [None]
  - CARDIOTHORACIC RATIO INCREASED [None]
  - EXERCISE TOLERANCE DECREASED [None]
  - HEPATOTOXICITY [None]
  - HYPERKALAEMIA [None]
  - LEUKOCYTOSIS [None]
  - METABOLIC ACIDOSIS [None]
  - NAUSEA [None]
  - PYREXIA [None]
  - RESPIRATORY RATE INCREASED [None]
  - VOMITING [None]
